FAERS Safety Report 5808183-3 (Version None)
Quarter: 2008Q3

REPORT INFORMATION
  Report Type: 
  Country: None (occurrence: None)
  Receive Date: 20080709
  Receipt Date: 20080625
  Transmission Date: 20090109
  Serious: Yes (Other)
  Sender: FDA-Public Use
  Company Number: 2008016926

PATIENT
  Age: 32 Year
  Sex: Female
  Weight: 81.6475 kg

DRUGS (1)
  1. NEOSPORIN [Suspect]
     Dosage: TOPICAL
     Route: 061
     Dates: start: 19780601, end: 20080622

REACTIONS (1)
  - ANAPHYLACTIC SHOCK [None]
